FAERS Safety Report 20549905 (Version 3)
Quarter: 2022Q1

REPORT INFORMATION
  Report Type: Spontaneous
  Country: BR (occurrence: BR)
  Receive Date: 20220304
  Receipt Date: 20220331
  Transmission Date: 20220423
  Serious: Yes (Hospitalization, Other)
  Sender: FDA-Public Use
  Company Number: BR-SA-SAC20220225001299

PATIENT
  Age: 62 Year
  Sex: Male
  Weight: 93 kg

DRUGS (2)
  1. APIDRA SOLOSTAR [Suspect]
     Active Substance: INSULIN GLULISINE
     Indication: Type 2 diabetes mellitus
     Dosage: 20 IU, TID
     Route: 058
     Dates: start: 20120901
  2. LANTUS [Suspect]
     Active Substance: INSULIN GLARGINE
     Indication: Type 2 diabetes mellitus
     Dosage: 14 IU, QD
     Route: 058
     Dates: start: 20120901

REACTIONS (27)
  - Bradycardia [Unknown]
  - Heart rate decreased [Unknown]
  - Loss of consciousness [Unknown]
  - Sleep disorder [Unknown]
  - Osteomyelitis [Unknown]
  - Gangrene [Unknown]
  - Neuropathic arthropathy [Unknown]
  - Cardiac amyloidosis [Unknown]
  - Dermal cyst [Unknown]
  - Inflammation [Unknown]
  - Discharge [Unknown]
  - Infection [Unknown]
  - Skin papilloma [Unknown]
  - Atrophy [Unknown]
  - Tremor [Unknown]
  - Ankle fracture [Unknown]
  - Localised infection [Unknown]
  - Gait disturbance [Unknown]
  - Muscle atrophy [Unknown]
  - Nervousness [Unknown]
  - Movement disorder [Unknown]
  - Accident [Unknown]
  - Rib fracture [Unknown]
  - Foot fracture [Unknown]
  - Fall [Unknown]
  - Muscular weakness [Unknown]
  - Nervous system disorder [Unknown]

NARRATIVE: CASE EVENT DATE: 20120101
